FAERS Safety Report 7427194-8 (Version None)
Quarter: 2011Q2

REPORT INFORMATION
  Report Type: 
  Country: None (occurrence: None)
  Receive Date: 20110420
  Receipt Date: 20081203
  Transmission Date: 20111010
  Serious: Yes (Hospitalization, Other)
  Sender: FDA-Public Use
  Company Number: DE-GENENTECH-316999

PATIENT
  Age: 75 Year
  Sex: Female

DRUGS (3)
  1. LUCENTIS [Suspect]
     Dosage: UNK
     Route: 031
     Dates: start: 20090115
  2. LUCENTIS [Suspect]
     Dosage: UNK
     Route: 031
     Dates: start: 20090123
  3. LUCENTIS [Suspect]
     Indication: MACULAR DEGENERATION
     Dosage: UNK
     Route: 031
     Dates: start: 20080904

REACTIONS (8)
  - HERPES ZOSTER [None]
  - CARDIAC DISORDER [None]
  - MALAISE [None]
  - VISUAL ACUITY REDUCED [None]
  - DEPRESSED MOOD [None]
  - INTRAOCULAR PRESSURE INCREASED [None]
  - IRIS ADHESIONS [None]
  - HAEMATOMA [None]
